FAERS Safety Report 23788151 (Version 1)
Quarter: 2024Q2

REPORT INFORMATION
  Report Type: Spontaneous
  Country: GB (occurrence: GB)
  Receive Date: 20240426
  Receipt Date: 20240426
  Transmission Date: 20240716
  Serious: Yes (Other)
  Sender: FDA-Public Use
  Company Number: GB-MHRA-ADR 28653772

PATIENT
  Age: 87 Year
  Sex: Male

DRUGS (9)
  1. CIPROFLOXACIN [Suspect]
     Active Substance: CIPROFLOXACIN
     Indication: Lower respiratory tract infection
     Dosage: 750 MILLIGRAM, TWO TIMES A DAY
     Route: 048
     Dates: start: 20230928, end: 20231001
  2. TRELEGY ELLIPTA [Concomitant]
     Active Substance: FLUTICASONE FUROATE\UMECLIDINIUM BROMIDE\VILANTEROL TRIFENATATE
     Indication: Product used for unknown indication
     Dosage: 1 DOSAGE FORM, ONCE A DAY
     Route: 065
  3. VENTOLIN [Concomitant]
     Active Substance: ALBUTEROL SULFATE
     Indication: Product used for unknown indication
     Dosage: UNK
     Route: 065
  4. BISOPROLOL [Concomitant]
     Active Substance: BISOPROLOL\BISOPROLOL FUMARATE
     Indication: Product used for unknown indication
     Dosage: 1.25 MILLIGRAM, TWO TIMES A DAY
     Route: 065
  5. FEBUXOSTAT [Concomitant]
     Active Substance: FEBUXOSTAT
     Indication: Product used for unknown indication
     Dosage: 80 MILLIGRAM, ONCE A DAY
     Route: 065
  6. TAMSULOSIN [Concomitant]
     Active Substance: TAMSULOSIN
     Indication: Product used for unknown indication
     Dosage: 400 NANOGRAM, ONCE A DAY
     Route: 065
  7. DABIGATRAN [Concomitant]
     Active Substance: DABIGATRAN
     Indication: Product used for unknown indication
     Dosage: 110 MILLIGRAM, TWO TIMES A DAY
     Route: 065
  8. CARBOCYSTEINE [Concomitant]
     Active Substance: CARBOCYSTEINE
     Indication: Product used for unknown indication
     Dosage: 750 MILLIGRAM, TWO TIMES A DAY
     Route: 065
  9. LANSOPRAZOLE [Concomitant]
     Active Substance: LANSOPRAZOLE
     Indication: Product used for unknown indication
     Dosage: 30 MILLIGRAM, ONCE A DAY
     Route: 065

REACTIONS (2)
  - Depression [Recovered/Resolved]
  - Depression suicidal [Recovered/Resolved]

NARRATIVE: CASE EVENT DATE: 20230928
